FAERS Safety Report 23027343 (Version 1)
Quarter: 2023Q4

REPORT INFORMATION
  Report Type: Spontaneous
  Country: US (occurrence: US)
  Receive Date: 20231004
  Receipt Date: 20231004
  Transmission Date: 20240110
  Serious: No
  Sender: FDA-Public Use
  Company Number: US-AMGEN-USASP2023172869

PATIENT
  Age: 24 Year
  Sex: Female
  Weight: 63.6 kg

DRUGS (1)
  1. AIMOVIG [Suspect]
     Active Substance: ERENUMAB-AOOE
     Indication: Migraine
     Dosage: UNK, QMO
     Route: 065

REACTIONS (5)
  - Night sweats [Unknown]
  - Lymphadenopathy [Recovered/Resolved]
  - Pain [Recovered/Resolved]
  - Blood iron increased [Unknown]
  - Weight decreased [Unknown]

NARRATIVE: CASE EVENT DATE: 20220101
